FAERS Safety Report 11694168 (Version 1)
Quarter: 2015Q4

REPORT INFORMATION
  Report Type: Spontaneous
  Country: US (occurrence: US)
  Receive Date: 20151103
  Receipt Date: 20151103
  Transmission Date: 20160304
  Serious: No
  Sender: FDA-Public Use
  Company Number: US-GILEAD-2015-0179353

PATIENT
  Sex: Male

DRUGS (1)
  1. STRIBILD [Suspect]
     Active Substance: COBICISTAT\ELVITEGRAVIR\EMTRICITABINE\TENOFOVIR DISOPROXIL FUMARATE
     Indication: PROPHYLAXIS
     Dosage: UNK
     Route: 065
     Dates: start: 201510

REACTIONS (5)
  - Laceration [Unknown]
  - Nasopharyngitis [Unknown]
  - Off label use [Unknown]
  - Infection [Unknown]
  - Chills [Unknown]

NARRATIVE: CASE EVENT DATE: 201510
